FAERS Safety Report 22256763 (Version 1)
Quarter: 2023Q2

REPORT INFORMATION
  Report Type: Spontaneous
  Country: IL (occurrence: IL)
  Receive Date: 20230426
  Receipt Date: 20230426
  Transmission Date: 20230722
  Serious: Yes (Hospitalization, Disabling, Other)
  Sender: FDA-Public Use
  Company Number: IL-BRISTOL-MYERS SQUIBB COMPANY-2023-057291

PATIENT
  Age: 75 Year
  Sex: Male

DRUGS (2)
  1. OPDIVO [Suspect]
     Active Substance: NIVOLUMAB
     Indication: Product used for unknown indication
     Dates: start: 20221123
  2. PREDNISONE [Concomitant]
     Active Substance: PREDNISONE
     Indication: Product used for unknown indication

REACTIONS (11)
  - Muscular weakness [Unknown]
  - Photosensitivity reaction [Unknown]
  - Eyelid ptosis [Unknown]
  - Myasthenia gravis [Unknown]
  - Pollakiuria [Unknown]
  - Hypersomnia [Unknown]
  - Gait inability [Unknown]
  - Weight decreased [Unknown]
  - Feeling cold [Unknown]
  - Asthenia [Unknown]
  - Limb discomfort [Unknown]

NARRATIVE: CASE EVENT DATE: 20230127
